FAERS Safety Report 6518874-7 (Version None)
Quarter: 2009Q4

REPORT INFORMATION
  Report Type: 
  Country: None (occurrence: None)
  Receive Date: 20091228
  Receipt Date: 20091221
  Transmission Date: 20100525
  Serious: Yes (Hospitalization, Other)
  Sender: FDA-Public Use
  Company Number: US-ROXANE LABORATORIES, INC.-2009-RO-01280RO

PATIENT
  Age: 67 Year
  Sex: Female

DRUGS (3)
  1. MORPHINE [Suspect]
     Indication: HEADACHE
     Route: 042
  2. LIPITOR [Suspect]
     Dosage: 10 MG
  3. ATENOLOL [Suspect]
     Indication: SINUS TACHYCARDIA
     Dosage: 50 MG

REACTIONS (4)
  - DRUG INEFFECTIVE [None]
  - HEADACHE [None]
  - NAUSEA [None]
  - VOMITING [None]
